FAERS Safety Report 18541912 (Version 1)
Quarter: 2020Q4

REPORT INFORMATION
  Report Type: Report from Study
  Country: CO (occurrence: CO)
  Receive Date: 20201124
  Receipt Date: 20201124
  Transmission Date: 20210114
  Serious: Yes (Death, Hospitalization)
  Sender: FDA-Public Use
  Company Number: NVSC2020CO275409

PATIENT
  Age: 59 Year
  Sex: Female
  Weight: 50 kg

DRUGS (3)
  1. MEKINIST [Suspect]
     Active Substance: TRAMETINIB DIMETHYL SULFOXIDE
     Indication: METASTATIC MALIGNANT MELANOMA
     Dosage: 2 MG, QD (A YEAR AGO)
     Route: 048
     Dates: end: 202009
  2. LEVOTHYROXINE. [Concomitant]
     Active Substance: LEVOTHYROXINE
     Indication: HYPOTHYROIDISM
     Dosage: UNK, QD
     Route: 048
  3. TAFINLAR [Suspect]
     Active Substance: DABRAFENIB MESYLATE
     Indication: METASTATIC MALIGNANT MELANOMA
     Dosage: 150 MG, Q12H (A YEAR AGO)
     Route: 048
     Dates: end: 202009

REACTIONS (11)
  - Death [Fatal]
  - Metastases to central nervous system [Unknown]
  - Hypoxia [Unknown]
  - Tachycardia [Unknown]
  - Speech disorder [Unknown]
  - Amnesia [Unknown]
  - Malignant neoplasm progression [Unknown]
  - Gait disturbance [Unknown]
  - Drug ineffective [Unknown]
  - Incontinence [Unknown]
  - Metastases to lung [Unknown]

NARRATIVE: CASE EVENT DATE: 20201112
